FAERS Safety Report 20348665 (Version 1)
Quarter: 2022Q1

REPORT INFORMATION
  Report Type: Spontaneous
  Country: US (occurrence: None)
  Receive Date: 20220119
  Receipt Date: 20220119
  Transmission Date: 20220423
  Serious: No
  Sender: FDA-Public Use
  Company Number: US-MDD US Operations-MDD202109-001838

PATIENT

DRUGS (1)
  1. MYOBLOC [Suspect]
     Active Substance: RIMABOTULINUMTOXINB
     Indication: Migraine
     Dosage: NOT PROVIDED

REACTIONS (4)
  - Insomnia [Unknown]
  - Dyspepsia [Unknown]
  - Dry mouth [Unknown]
  - Drug effective for unapproved indication [Unknown]
